FAERS Safety Report 17334535 (Version 1)
Quarter: 2020Q1

REPORT INFORMATION
  Report Type: Spontaneous
  Country: US (occurrence: US)
  Receive Date: 20200128
  Receipt Date: 20200128
  Transmission Date: 20200409
  Serious: No
  Sender: FDA-Public Use
  Company Number: US-PARATEK PHARMACEUTICALS, INC.-2019PTK00139

PATIENT
  Age: 57 Year
  Sex: Female

DRUGS (4)
  1. NUZYRA [Suspect]
     Active Substance: OMADACYCLINE
     Indication: LYMPHANGITIS
  2. NUZYRA [Suspect]
     Active Substance: OMADACYCLINE
     Indication: BETA HAEMOLYTIC STREPTOCOCCAL INFECTION
     Dosage: 300 MG, 1X/DAY
     Route: 048
     Dates: start: 20191207, end: 20191208
  3. NUZYRA [Suspect]
     Active Substance: OMADACYCLINE
     Indication: SKIN INFECTION
  4. NUZYRA [Suspect]
     Active Substance: OMADACYCLINE
     Indication: STAPHYLOCOCCAL INFECTION

REACTIONS (3)
  - Underdose [Recovered/Resolved]
  - Hypersensitivity [Unknown]
  - Urticaria [Unknown]

NARRATIVE: CASE EVENT DATE: 201912
